FAERS Safety Report 4952023-1 (Version None)
Quarter: 2006Q1

REPORT INFORMATION
  Report Type: 
  Country: None (occurrence: None)
  Receive Date: 20060322
  Receipt Date: 20060322
  Transmission Date: 20060701
  Serious: Yes (Hospitalization)
  Sender: FDA-Public Use
  Company Number: None

PATIENT
  Sex: Female
  Weight: 42.1845 kg

DRUGS (1)
  1. BACTRIM [Suspect]
     Indication: ESCHERICHIA URINARY TRACT INFECTION
     Dosage: SINCLE STRENGTH BID PO
     Route: 048
     Dates: start: 20060113, end: 20060122

REACTIONS (2)
  - BIOPSY KIDNEY ABNORMAL [None]
  - NEPHRITIS INTERSTITIAL [None]
